FAERS Safety Report 23382453 (Version 1)
Quarter: 2024Q1

REPORT INFORMATION
  Report Type: Spontaneous
  Country: DE (occurrence: DE)
  Receive Date: 20240109
  Receipt Date: 20240109
  Transmission Date: 20240409
  Serious: Yes (Death, Other)
  Sender: FDA-Public Use
  Company Number: DE-SZ09-GXKR2010DE01721

PATIENT
  Age: 46 Year
  Sex: Male
  Weight: 73 kg

DRUGS (9)
  1. ARSENIC [Suspect]
     Active Substance: ARSENIC
     Indication: Product used for unknown indication
     Dosage: UNK
     Route: 065
  2. ALCOHOL [Suspect]
     Active Substance: ALCOHOL
     Indication: Product used for unknown indication
     Dosage: UNK
     Route: 065
  3. DIPHENHYDRAMINE HYDROCHLORIDE [Suspect]
     Active Substance: DIPHENHYDRAMINE HYDROCHLORIDE
     Indication: Product used for unknown indication
     Dosage: UNK
     Route: 065
  4. ACETAMINOPHEN [Suspect]
     Active Substance: ACETAMINOPHEN
     Indication: Product used for unknown indication
     Dosage: UNK
     Route: 065
  5. PHOSPHORIC ACID [Suspect]
     Active Substance: PHOSPHORIC ACID
     Indication: Product used for unknown indication
     Dosage: UNK
     Route: 065
  6. ZINC [Suspect]
     Active Substance: PYRITHIONE ZINC\ZINC\ZINC CHLORIDE
     Indication: Product used for unknown indication
     Dosage: UNK
     Route: 065
  7. ZOPICLONE [Suspect]
     Active Substance: ZOPICLONE
     Indication: Product used for unknown indication
     Dosage: UNK
     Route: 065
  8. NICOTINE [Interacting]
     Active Substance: NICOTINE
     Indication: Product used for unknown indication
     Dosage: 25 TRANSDERMAL PATCHES (7 MG-DOSES)
     Route: 062
  9. TRAMADOL [Interacting]
     Active Substance: TRAMADOL\TRAMADOL HYDROCHLORIDE
     Indication: Product used for unknown indication
     Route: 065

REACTIONS (18)
  - Cardiopulmonary failure [Fatal]
  - Toxicity to various agents [Fatal]
  - Completed suicide [Fatal]
  - Depressed level of consciousness [Fatal]
  - Myocardial ischaemia [Unknown]
  - Cardiac failure [Fatal]
  - Haemothorax [Unknown]
  - Brain oedema [Unknown]
  - Pulmonary congestion [Unknown]
  - Conjunctival haemorrhage [Unknown]
  - Myocardial infarction [Unknown]
  - Pulmonary oedema [Unknown]
  - Hyperaemia [Unknown]
  - Cerebral congestion [Unknown]
  - Ill-defined disorder [Unknown]
  - Arteriosclerosis [Unknown]
  - Drug interaction [Unknown]
  - Oedema [Unknown]
